FAERS Safety Report 4930475-0 (Version None)
Quarter: 2006Q1

REPORT INFORMATION
  Report Type: 
  Country: None (occurrence: None)
  Receive Date: 20060227
  Receipt Date: 20060214
  Transmission Date: 20060701
  Serious: Yes (Other)
  Sender: FDA-Public Use
  Company Number: 222112

PATIENT
  Age: 8 Year
  Sex: Female

DRUGS (4)
  1. NUTROPIN AQ [Suspect]
     Indication: CRANIOPHARYNGIOMA
     Dosage: 0.8 MG QD SUBCUTANEOUS
     Route: 058
     Dates: start: 20050804
  2. SYNTHROID [Concomitant]
  3. CORTEF [Concomitant]
  4. DDAVP (DESMOPRESSIN ACETATE) [Concomitant]

REACTIONS (2)
  - CONDITION AGGRAVATED [None]
  - CRANIOPHARYNGIOMA [None]
